FAERS Safety Report 9425355 (Version 2)
Quarter: 2013Q3

REPORT INFORMATION
  Report Type: Spontaneous
  Country: IT (occurrence: IT)
  Receive Date: 20130729
  Receipt Date: 20130924
  Transmission Date: 20140515
  Serious: Yes (Hospitalization, Other)
  Sender: FDA-Public Use
  Company Number: IT-BRISTOL-MYERS SQUIBB COMPANY-19138171

PATIENT
  Age: 73 Year
  Sex: Male

DRUGS (11)
  1. COUMADIN [Suspect]
     Indication: ATRIAL FIBRILLATION
  2. LANSOX [Concomitant]
  3. NORVASC [Concomitant]
  4. SIVASTIN [Concomitant]
  5. LANOXIN [Concomitant]
  6. UNASYN [Concomitant]
  7. LEVOXACIN [Concomitant]
  8. SOLU-MEDROL [Concomitant]
  9. HUMALOG [Concomitant]
  10. LANTUS [Concomitant]
  11. LOSAPREX [Concomitant]

REACTIONS (3)
  - International normalised ratio increased [Recovered/Resolved]
  - Medication error [Unknown]
  - Overdose [Unknown]
